FAERS Safety Report 10816451 (Version 3)
Quarter: 2015Q2

REPORT INFORMATION
  Report Type: Report from Study
  Country: DE (occurrence: DE)
  Receive Date: 20150218
  Receipt Date: 20150402
  Transmission Date: 20150821
  Serious: Yes (Hospitalization)
  Sender: FDA-Public Use
  Company Number: DE-OTSUKA-US-2015-10837

PATIENT

DRUGS (9)
  1. ABILIFY MAINTENA [Suspect]
     Active Substance: ARIPIPRAZOLE
     Dosage: 400 MG MILLIGRAM(S), UNK
     Route: 030
     Dates: start: 20141209, end: 20141209
  2. QUILONUM [Concomitant]
     Active Substance: LITHIUM CARBONATE
     Indication: SCHIZOAFFECTIVE DISORDER
     Dosage: 1350 MG MILLIGRAM(S), QD (450 MG-0-0-900 MG)
     Route: 048
  3. ABILIFY [Concomitant]
     Active Substance: ARIPIPRAZOLE
     Indication: SCHIZOAFFECTIVE DISORDER
     Dosage: 10 MG MILLIGRAM(S), DAILY DOSE
     Route: 048
     Dates: start: 20141021, end: 20141209
  4. ZOPICLON [Concomitant]
     Active Substance: ZOPICLONE
     Indication: PRODUCT USED FOR UNKNOWN INDICATION
     Dosage: 7.5 MG PER DAY ( 1 TABLET WITH AN INTERVAL OF 24 HOURS IN BETWEEN) AS NEEDED
     Route: 048
  5. ZUCLOPENTHIXOL-DECANOATE [Concomitant]
     Indication: SCHIZOAFFECTIVE DISORDER
     Dosage: 200 MG MILLIGRAM(S), EVERY 14 DAYS, 14.2857
     Route: 030
  6. ZUCLOPENTHIXOL-TABLETS [Concomitant]
     Indication: PRODUCT USED FOR UNKNOWN INDICATION
     Dosage: UP TO 75 MG PER DAY (3 TABLETS WITH AN INTERVAL OF 4 HOURS IN BETWEEN) AS NEEDED
     Route: 048
  7. TAVOR [Concomitant]
     Active Substance: LORAZEPAM
     Indication: PANIC ATTACK
     Dosage: UNK, PRN
     Route: 048
  8. ABILIFY MAINTENA [Suspect]
     Active Substance: ARIPIPRAZOLE
     Indication: SCHIZOAFFECTIVE DISORDER
     Dosage: 400 MG MILLIGRAM(S), UNK
     Route: 030
     Dates: start: 20141110, end: 20141110
  9. TAVOR [Concomitant]
     Active Substance: LORAZEPAM
     Dosage: AS NEEDED

REACTIONS (2)
  - Mania [Recovering/Resolving]
  - Agitation [Recovering/Resolving]

NARRATIVE: CASE EVENT DATE: 201412
